FAERS Safety Report 15735937 (Version 1)
Quarter: 2018Q4

REPORT INFORMATION
  Report Type: Spontaneous
  Country: US (occurrence: US)
  Receive Date: 20181205
  Receipt Date: 20181205
  Transmission Date: 20190205
  Serious: Yes (Life-Threatening, Hospitalization, Disabling)
  Sender: FDA-Public Use
  Company Number: None

PATIENT
  Age: 26 Year
  Sex: Female
  Weight: 68.95 kg

DRUGS (1)
  1. LILETTA [Suspect]
     Active Substance: LEVONORGESTREL

REACTIONS (5)
  - Sensory loss [None]
  - Weight decreased [None]
  - General physical health deterioration [None]
  - Cognitive disorder [None]
  - Increased tendency to bruise [None]

NARRATIVE: CASE EVENT DATE: 20181123
